FAERS Safety Report 4340054-4 (Version None)
Quarter: 2004Q2

REPORT INFORMATION
  Report Type: 
  Country: None (occurrence: None)
  Receive Date: 20040416
  Receipt Date: 20040408
  Transmission Date: 20050107
  Serious: Yes (Hospitalization)
  Sender: FDA-Public Use
  Company Number: JP-ROCHE-363972

PATIENT
  Age: 18 Hour
  Sex: Female

DRUGS (1)
  1. HORIZON [Suspect]
     Indication: DRUG USE FOR UNKNOWN INDICATION
     Route: 030

REACTIONS (8)
  - CRYING [None]
  - DECREASED ACTIVITY [None]
  - DRUG LEVEL INCREASED [None]
  - FEEDING PROBLEM IN NEWBORN [None]
  - MEDICATION ERROR [None]
  - NEONATAL DISORDER [None]
  - NEONATAL RESPIRATORY DEPRESSION [None]
  - RESPIRATORY DEPRESSION [None]
